FAERS Safety Report 18730680 (Version 1)
Quarter: 2021Q1

REPORT INFORMATION
  Report Type: Spontaneous
  Country: CN (occurrence: CN)
  Receive Date: 20210112
  Receipt Date: 20210112
  Transmission Date: 20210419
  Serious: Yes (Hospitalization)
  Sender: FDA-Public Use
  Company Number: CN-BAXTER-2021BAX000248

PATIENT
  Age: 26 Year
  Sex: Female
  Weight: 50.5 kg

DRUGS (5)
  1. UROMITEXAN [Suspect]
     Active Substance: MESNA
     Indication: PROPHYLAXIS
     Route: 042
     Dates: start: 20201211, end: 20201212
  2. SODIUM CHLORIDE. [Suspect]
     Active Substance: SODIUM CHLORIDE
     Indication: MEDICATION DILUTION
     Dosage: CYCLOPHOSPHAMIDE 2G + 0.9% SODIUM CHLORIDE 250 ML;
     Route: 041
     Dates: start: 20201202, end: 20201205
  3. SODIUM CHLORIDE. [Suspect]
     Active Substance: SODIUM CHLORIDE
     Dosage: CYCLOPHOSPHAMIDE 2G + 0.9% SODIUM CHLORIDE 250 ML; DOSE REINTRODUCED
     Route: 041
     Dates: start: 20201211, end: 20201211
  4. ENDOXAN [Suspect]
     Active Substance: CYCLOPHOSPHAMIDE
     Dosage: CYCLOPHOSPHAMIDE 2G + 0.9% SODIUM CHLORIDE 250 ML; DOSE REINTRODUCED
     Route: 041
     Dates: start: 20201211, end: 20201211
  5. ENDOXAN [Suspect]
     Active Substance: CYCLOPHOSPHAMIDE
     Indication: APLASTIC ANAEMIA
     Dosage: CYCLOPHOSPHAMIDE 2G + 0.9% SODIUM CHLORIDE 250 ML
     Route: 041
     Dates: start: 20201202, end: 20201205

REACTIONS (5)
  - Dysuria [Recovered/Resolved]
  - Urinary occult blood positive [Unknown]
  - Haematuria [Recovered/Resolved]
  - Dysuria [Recovered/Resolved]
  - Paraesthesia [Unknown]

NARRATIVE: CASE EVENT DATE: 20201206
